FAERS Safety Report 7305911-5 (Version None)
Quarter: 2011Q1

REPORT INFORMATION
  Report Type: 
  Country: None (occurrence: None)
  Receive Date: 20110222
  Receipt Date: 20110210
  Transmission Date: 20110831
  Serious: Yes (Other)
  Sender: FDA-Public Use
  Company Number: US-PFIZER INC-2010003896

PATIENT
  Age: 55 Year
  Sex: Male

DRUGS (4)
  1. XANAX [Suspect]
     Dosage: OVERDOSE AMOUNT UNKNOWN
     Route: 048
     Dates: start: 20080601, end: 20080601
  2. TRAZODONE [Concomitant]
  3. TYLENOL [Suspect]
     Dosage: OVERDOSE AMOUNT UNKNOWN
     Dates: start: 20080601, end: 20080601
  4. PRISTIQ [Suspect]
     Indication: MAJOR DEPRESSION
     Dosage: 50 MG, 1X/DAY
     Dates: end: 20080601

REACTIONS (7)
  - OVERDOSE [None]
  - PHYSICAL ASSAULT [None]
  - INTENTIONAL OVERDOSE [None]
  - IMPRISONMENT [None]
  - SUICIDE ATTEMPT [None]
  - HOSTILITY [None]
  - AGGRESSION [None]
